FAERS Safety Report 22103838 (Version 1)
Quarter: 2023Q1

REPORT INFORMATION
  Report Type: Spontaneous
  Country: US (occurrence: None)
  Receive Date: 20230316
  Receipt Date: 20230316
  Transmission Date: 20230417
  Serious: Yes (Other)
  Sender: FDA-Public Use
  Company Number: US-FARMAPROD-202303-0619

PATIENT
  Sex: Female

DRUGS (9)
  1. OXERVATE [Suspect]
     Active Substance: CENEGERMIN-BKBJ
     Indication: Neurotrophic keratopathy
     Route: 047
     Dates: start: 20230210, end: 20230307
  2. ARTIFICIAL TEARS [Concomitant]
  3. VYZULTA [Concomitant]
     Active Substance: LATANOPROSTENE BUNOD
  4. COMBIGAN [Concomitant]
     Active Substance: BRIMONIDINE TARTRATE\TIMOLOL MALEATE
     Dosage: 0.2%-0.5%
  5. COLACE [Concomitant]
     Active Substance: DOCUSATE SODIUM
  6. VITAMIN D3 [Concomitant]
     Active Substance: CHOLECALCIFEROL
  7. MULTI-VITAMIN DAILY [Concomitant]
  8. SODIUM CHLORIDE [Concomitant]
     Active Substance: SODIUM CHLORIDE
  9. AMLODIPINE BESYLATE [Concomitant]
     Active Substance: AMLODIPINE BESYLATE

REACTIONS (5)
  - Corneal degeneration [Unknown]
  - Eye pain [Unknown]
  - Eye swelling [Unknown]
  - Eye irritation [Unknown]
  - Vision blurred [Unknown]
